FAERS Safety Report 23865654 (Version 1)
Quarter: 2024Q2

REPORT INFORMATION
  Report Type: Spontaneous
  Country: RU (occurrence: RU)
  Receive Date: 20240517
  Receipt Date: 20240517
  Transmission Date: 20240715
  Serious: Yes (Death, Life-Threatening, Other)
  Sender: FDA-Public Use
  Company Number: RU-ABBVIE-5761751

PATIENT
  Age: 4 Year
  Sex: Female
  Weight: 13 kg

DRUGS (2)
  1. SEVOFLURANE [Suspect]
     Active Substance: SEVOFLURANE
     Indication: Magnetic resonance imaging
     Dosage: INDUCTION STARTED AT DOSE OF 8 VOL PERCENT, AND AT 5TH MINUTE BASIC ANESTHESIA BECAME AT DOSE OF ...
     Route: 055
     Dates: start: 20240410, end: 20240410
  2. GADOTERATE MEGLUMINE [Suspect]
     Active Substance: GADOTERATE MEGLUMINE
     Indication: Magnetic resonance imaging
     Dosage: 2.6 ML?ONCE
     Route: 042
     Dates: start: 20240410, end: 20240410

REACTIONS (2)
  - Anaphylactic shock [Fatal]
  - Bradycardia [Recovered/Resolved]

NARRATIVE: CASE EVENT DATE: 20240410
